FAERS Safety Report 14127436 (Version 1)
Quarter: 2017Q4

REPORT INFORMATION
  Report Type: Spontaneous
  Country: US (occurrence: US)
  Receive Date: 20171026
  Receipt Date: 20171026
  Transmission Date: 20180321
  Serious: No
  Sender: FDA-Public Use
  Company Number: US-TEVA-776570ACC

PATIENT
  Age: 59 Year
  Sex: Female

DRUGS (1)
  1. CARBIDOPA AND LEVODOPA [Suspect]
     Active Substance: CARBIDOPA\LEVODOPA
     Route: 065

REACTIONS (3)
  - Arthralgia [Unknown]
  - Headache [Unknown]
  - Ocular hyperaemia [Unknown]
